FAERS Safety Report 16965488 (Version 1)
Quarter: 2019Q4

REPORT INFORMATION
  Report Type: Spontaneous
  Country: US (occurrence: US)
  Receive Date: 20190909
  Receipt Date: 20190909
  Transmission Date: 20200122
  Serious: Yes (Other)
  Sender: FDA-Public Use
  Company Number: None

PATIENT
  Age: 58 Year
  Sex: Female

DRUGS (1)
  1. BENLYSTA [Suspect]
     Active Substance: BELIMUMAB
     Indication: PRODUCT USED FOR UNKNOWN INDICATION
     Route: 058
     Dates: start: 20190620

REACTIONS (9)
  - Headache [None]
  - Umbilical hernia [None]
  - Lymphoedema [None]
  - Arthralgia [None]
  - Hypoaesthesia [None]
  - Akathisia [None]
  - Pyrexia [None]
  - Paraesthesia [None]
  - Joint stiffness [None]

NARRATIVE: CASE EVENT DATE: 20190906
